FAERS Safety Report 6821129-4 (Version None)
Quarter: 2010Q3

REPORT INFORMATION
  Report Type: 
  Country: None (occurrence: None)
  Receive Date: 20100707
  Receipt Date: 20080208
  Transmission Date: 20110219
  Serious: No
  Sender: FDA-Public Use
  Company Number: US-PFIZER INC-2008013070

PATIENT
  Sex: Male
  Weight: 72.7 kg

DRUGS (2)
  1. ZOLOFT [Suspect]
     Indication: ANXIETY
     Dates: start: 20080201, end: 20080202
  2. BUSPAR [Concomitant]

REACTIONS (1)
  - TREMOR [None]
